FAERS Safety Report 21135354 (Version 1)
Quarter: 2022Q3

REPORT INFORMATION
  Report Type: Spontaneous
  Country: US (occurrence: US)
  Receive Date: 20220727
  Receipt Date: 20220727
  Transmission Date: 20221026
  Serious: No
  Sender: FDA-Public Use
  Company Number: US-ELI_LILLY_AND_COMPANY-US202207006881

PATIENT
  Sex: Male

DRUGS (6)
  1. HUMULIN R [Suspect]
     Active Substance: INSULIN HUMAN
     Indication: Diabetes mellitus
     Dosage: 40 U, EACH MORNING (40 UNITS FOR BREAKFAST)
     Route: 058
     Dates: start: 2017
  2. HUMULIN R [Suspect]
     Active Substance: INSULIN HUMAN
     Dosage: 40 U, DAILY (40 UNITS FOR LUNCH)
     Route: 058
     Dates: start: 2017
  3. HUMULIN R [Suspect]
     Active Substance: INSULIN HUMAN
     Dosage: 60 U, EACH EVENING (60 UNITS WITH DINNER)
     Route: 058
     Dates: start: 2017
  4. HUMULIN R [Suspect]
     Active Substance: INSULIN HUMAN
     Dosage: 40 U, EACH MORNING (40 UNITS FOR BREAKFAST)
     Route: 058
  5. HUMULIN R [Suspect]
     Active Substance: INSULIN HUMAN
     Dosage: 40 U, DAILY (40 UNITS FOR LUNCH)
     Route: 058
  6. HUMULIN R [Suspect]
     Active Substance: INSULIN HUMAN
     Dosage: 60 U, EACH EVENING (60 UNITS WITH DINNER)
     Route: 058

REACTIONS (2)
  - Insulin resistance [Not Recovered/Not Resolved]
  - Wrong technique in product usage process [Not Recovered/Not Resolved]
